FAERS Safety Report 4734827-3 (Version None)
Quarter: 2005Q3

REPORT INFORMATION
  Report Type: 
  Country: None (occurrence: None)
  Receive Date: 20050729
  Receipt Date: 20050722
  Transmission Date: 20060218
  Serious: Yes (Disabling, Other)
  Sender: FDA-Public Use
  Company Number: 2005106122

PATIENT
  Sex: Male
  Weight: 79.3795 kg

DRUGS (4)
  1. LIPITOR [Suspect]
     Indication: BLOOD CHOLESTEROL
     Dosage: 10 MG (10 MG, 1 IN 1 D), ORAL
     Route: 048
     Dates: end: 20050701
  2. LANOXIN [Concomitant]
  3. NIACIN [Concomitant]
  4. WARFARIN SODIUM [Concomitant]

REACTIONS (6)
  - ABASIA [None]
  - AMYOTROPHIC LATERAL SCLEROSIS [None]
  - BALANCE DISORDER [None]
  - MUSCULAR WEAKNESS [None]
  - NEUROMYOPATHY [None]
  - WALKING AID USER [None]
